FAERS Safety Report 10064611 (Version 2)
Quarter: 2015Q2

REPORT INFORMATION
  Report Type: Spontaneous
  Country: US (occurrence: US)
  Receive Date: 20140408
  Receipt Date: 20150408
  Transmission Date: 20150821
  Serious: Yes (Death, Life-Threatening, Hospitalization, Other)
  Sender: FDA-Public Use
  Company Number: US-MERCK-1404USA003928

PATIENT
  Sex: Female
  Weight: 83.9 kg

DRUGS (2)
  1. JANUVIA [Suspect]
     Active Substance: SITAGLIPTIN PHOSPHATE
     Indication: TYPE 2 DIABETES MELLITUS
     Dosage: 100 MG, QD
     Route: 048
     Dates: start: 20090415, end: 20120414
  2. JANUMET [Suspect]
     Active Substance: METFORMIN HYDROCHLORIDE\SITAGLIPTIN PHOSPHATE
     Indication: TYPE 2 DIABETES MELLITUS
     Dosage: 50 MG, BID
     Route: 048
     Dates: start: 20100303, end: 20100402

REACTIONS (21)
  - Acute kidney injury [Unknown]
  - Nephropathy [Unknown]
  - Hypertension [Unknown]
  - Carcinoid tumour of the pancreas [Unknown]
  - Pneumonia [Unknown]
  - Gastrooesophageal reflux disease [Unknown]
  - Blood cholesterol increased [Unknown]
  - Portal vein thrombosis [Unknown]
  - Dyspnoea [Unknown]
  - Acute respiratory failure [Unknown]
  - Metabolic acidosis [Unknown]
  - Neuropathy peripheral [Unknown]
  - Pancreatic carcinoma [Unknown]
  - Death [Fatal]
  - Cardiac failure congestive [Unknown]
  - Gout [Unknown]
  - Abdominal pain [Unknown]
  - Anaemia [Unknown]
  - Metabolic encephalopathy [Unknown]
  - Sepsis [Unknown]
  - Anxiety [Unknown]

NARRATIVE: CASE EVENT DATE: 201203
